FAERS Safety Report 5097573-5 (Version None)
Quarter: 2006Q3

REPORT INFORMATION
  Report Type: 
  Country: None (occurrence: None)
  Receive Date: 20060901
  Receipt Date: 20060822
  Transmission Date: 20061208
  Serious: Yes (Disabling, Other)
  Sender: FDA-Public Use
  Company Number: 2006091581

PATIENT
  Age: 18 Year
  Sex: Female
  Weight: 44 kg

DRUGS (10)
  1. VFEND [Suspect]
     Indication: ASPERGILLOSIS
     Dosage: SEE IMAGE
     Route: 042
     Dates: start: 20050822, end: 20050901
  2. VFEND [Suspect]
     Indication: ASPERGILLOSIS
     Dosage: SEE IMAGE
     Route: 042
     Dates: start: 20050828, end: 20050912
  3. CYCLOSPORINE [Suspect]
     Indication: IMMUNOSUPPRESSION
     Dosage: SEE IMAGE
     Route: 042
     Dates: start: 20040327, end: 20040426
  4. CYCLOSPORINE [Suspect]
     Indication: IMMUNOSUPPRESSION
     Dosage: SEE IMAGE
     Route: 042
     Dates: start: 20040427, end: 20050619
  5. CYCLOSPORINE [Suspect]
     Indication: IMMUNOSUPPRESSION
     Dosage: SEE IMAGE
     Route: 042
     Dates: start: 20040701, end: 20060607
  6. FLUCONAZOLE [Concomitant]
  7. FOSFLUCONAZOLE (FOSFLUCONAZOLE) [Concomitant]
  8. SULFAMETHOXAZOLE + TRIMETHOPRIM [Concomitant]
  9. BETAMETHASONE [Concomitant]
  10. ZOVIRAX [Concomitant]

REACTIONS (5)
  - ACUTE GRAFT VERSUS HOST DISEASE IN LIVER [None]
  - DRUG LEVEL INCREASED [None]
  - HEPATIC FUNCTION ABNORMAL [None]
  - LIVER DISORDER [None]
  - VISUAL DISTURBANCE [None]
